FAERS Safety Report 4730903-X (Version None)
Quarter: 2005Q3

REPORT INFORMATION
  Report Type: 
  Country: None (occurrence: None)
  Receive Date: 20050719
  Receipt Date: 20050408
  Transmission Date: 20060218
  Serious: Yes (Hospitalization)
  Sender: FDA-Public Use
  Company Number: US-2005-001409

PATIENT
  Age: 51 Year
  Sex: Female

DRUGS (1)
  1. ULTRAVIST (PHARMACY BULK) [Suspect]
     Indication: COMPUTERISED TOMOGRAM CORONARY ARTERY
     Dosage: 175 ML, 1 DOSE, INTRAVENOUS
     Route: 042
     Dates: start: 20050201, end: 20050201

REACTIONS (9)
  - CHEST DISCOMFORT [None]
  - CONTRAST MEDIA REACTION [None]
  - OEDEMA PERIPHERAL [None]
  - SINUS TACHYCARDIA [None]
  - SWELLING FACE [None]
  - SWOLLEN TONGUE [None]
  - THROAT TIGHTNESS [None]
  - URTICARIA [None]
  - WHEEZING [None]
